FAERS Safety Report 8796204 (Version 1)
Quarter: 2012Q4

REPORT INFORMATION
  Report Type: 
  Country: CH (occurrence: CH)
  Receive Date: 20120920
  Receipt Date: 20120920
  Transmission Date: 20130627
  Serious: Yes (Other)
  Sender: FDA-Public Use
  Company Number: CH-PFIZER INC-2012231646

PATIENT
  Age: 45 Year
  Sex: Female

DRUGS (1)
  1. EFEXOR ER [Suspect]
     Dosage: 150 mg, 1x/day

REACTIONS (8)
  - Loss of consciousness [Unknown]
  - Memory impairment [Unknown]
  - Depression [Unknown]
  - Borderline personality disorder [Unknown]
  - Confusional state [Unknown]
  - Anxiety [Unknown]
  - Apathy [Unknown]
  - Withdrawal syndrome [Unknown]
